FAERS Safety Report 8247676-9 (Version None)
Quarter: 2012Q1

REPORT INFORMATION
  Report Type: 
  Country: None (occurrence: None)
  Receive Date: 20120330
  Receipt Date: 20120322
  Transmission Date: 20120608
  Serious: Yes (Hospitalization)
  Sender: FDA-Public Use
  Company Number: NL-ABBOTT-12P-114-0918087-06

PATIENT
  Sex: Female

DRUGS (14)
  1. LOPERAMIDE [Concomitant]
     Indication: DIARRHOEA
     Dates: start: 20080804
  2. HYDROCOBAMINE [Concomitant]
     Indication: VITAMIN SUPPLEMENTATION
     Dosage: 500MCG/ML
     Dates: start: 20061102
  3. HUMIRA [Suspect]
     Route: 058
     Dates: start: 20081231, end: 20090128
  4. CALCIUM CARBONATE [Concomitant]
     Indication: OSTEOPOROSIS
     Dosage: 500MG/400IE
     Dates: start: 20061102
  5. SODIUM CHLORIDE [Concomitant]
     Indication: OSTEOPOROSIS
     Dates: start: 20110629
  6. CORTICOSTEROIDS [Concomitant]
     Indication: PRODUCT USED FOR UNKNOWN INDICATION
  7. COMMERCIAL HUMIRA [Concomitant]
     Indication: CROHN'S DISEASE
     Dosage: 160 MG BASELINE/80 MG WEEK 2/ 40 MG 1 IN 2 WEEKS
     Route: 058
     Dates: start: 20080930
  8. QUESTRAN [Concomitant]
     Indication: DIARRHOEA
     Dates: start: 20081230
  9. PREDNISONE TAB [Concomitant]
     Indication: CROHN'S DISEASE
     Dates: start: 20090226
  10. VITAMIN D [Concomitant]
     Indication: OSTEOPOROSIS
     Dosage: DRINK
  11. HUMIRA [Suspect]
     Indication: CROHN'S DISEASE
     Route: 058
     Dates: start: 20081224, end: 20081224
  12. HUMIRA [Suspect]
     Route: 058
     Dates: start: 20090128, end: 20090731
  13. AZATHIOPRINE [Concomitant]
     Indication: CROHN'S DISEASE
     Dates: start: 20090112
  14. ACETAMINOPHEN [Concomitant]
     Indication: ABDOMINAL PAIN
     Dates: start: 20090310

REACTIONS (1)
  - INTESTINAL RESECTION [None]
